FAERS Safety Report 17315861 (Version 3)
Quarter: 2020Q2

REPORT INFORMATION
  Report Type: Spontaneous
  Country: US (occurrence: US)
  Receive Date: 20200124
  Receipt Date: 20200413
  Transmission Date: 20200713
  Serious: No
  Sender: FDA-Public Use
  Company Number: US-PFIZER INC-2020033266

PATIENT
  Age: 72 Year
  Sex: Female

DRUGS (2)
  1. FULVESTRANT. [Concomitant]
     Active Substance: FULVESTRANT
     Dosage: UNK
  2. IBRANCE [Suspect]
     Active Substance: PALBOCICLIB
     Indication: BREAST CANCER METASTATIC
     Dosage: 125 MG, CYCLIC (21 DAY CYCLE, 7 DAYS OFF)
     Dates: start: 201703

REACTIONS (4)
  - Abdominal discomfort [Unknown]
  - Vulvovaginal dryness [Not Recovered/Not Resolved]
  - Constipation [Unknown]
  - Alopecia [Unknown]
